FAERS Safety Report 7490200-9 (Version None)
Quarter: 2011Q2

REPORT INFORMATION
  Report Type: 
  Country: None (occurrence: None)
  Receive Date: 20110517
  Receipt Date: 20110517
  Transmission Date: 20111010
  Serious: Yes (Hospitalization)
  Sender: FDA-Public Use
  Company Number: None

PATIENT
  Sex: Male
  Weight: 40.7 kg

DRUGS (7)
  1. MERCAPTOPURINE [Suspect]
     Dosage: 35832.9 MG
  2. DAUNORUBICIN HCL [Suspect]
     Dosage: 45 MG
  3. VINCRISTINE SULFATE [Suspect]
     Dosage: 12.93 MG
  4. ELSPAR [Suspect]
     Dosage: 30000 IU
  5. DEXAMETHASONE [Suspect]
     Dosage: 220.5 MG
  6. LEUCOVORIN CALCIUM [Suspect]
     Dosage: 294 MG
  7. METHOTREXATE [Suspect]
     Dosage: 5360.5 MG

REACTIONS (4)
  - ACUTE LYMPHOCYTIC LEUKAEMIA RECURRENT [None]
  - REFUSAL OF TREATMENT BY RELATIVE [None]
  - TREATMENT RELATED SECONDARY MALIGNANCY [None]
  - ACUTE LYMPHOCYTIC LEUKAEMIA [None]
